FAERS Safety Report 8265174-3 (Version None)
Quarter: 2012Q2

REPORT INFORMATION
  Report Type: 
  Country: None (occurrence: None)
  Receive Date: 20120406
  Receipt Date: 20120327
  Transmission Date: 20120825
  Serious: Yes (Hospitalization, Other)
  Sender: FDA-Public Use
  Company Number: US-ROCHE-1052546

PATIENT
  Sex: Male

DRUGS (8)
  1. NORVIR [Concomitant]
     Dosage: FOR MANY YEARS
     Route: 048
  2. RIBAVIRIN [Suspect]
     Indication: PRODUCT USED FOR UNKNOWN INDICATION
     Dosage: 3 BID
     Route: 048
     Dates: start: 20120223
  3. PEGASYS [Suspect]
     Indication: PRODUCT USED FOR UNKNOWN INDICATION
     Dates: start: 20120223, end: 20120303
  4. LANTUS [Concomitant]
  5. LEXAPRO [Concomitant]
     Dosage: QD
     Route: 048
     Dates: start: 20110919
  6. INCIVEK [Suspect]
     Indication: PRODUCT USED FOR UNKNOWN INDICATION
     Route: 048
     Dates: start: 20120223, end: 20120303
  7. REYATAZ [Concomitant]
     Dosage: QD
     Route: 048
  8. COMBIVIR [Concomitant]
     Dosage: BID
     Route: 048

REACTIONS (3)
  - PROCTITIS [None]
  - PERIRECTAL ABSCESS [None]
  - RECTAL ABSCESS [None]
